FAERS Safety Report 11109842 (Version 2)
Quarter: 2016Q1

REPORT INFORMATION
  Report Type: Spontaneous
  Country: US (occurrence: US)
  Receive Date: 20150513
  Receipt Date: 20160209
  Transmission Date: 20160525
  Serious: No
  Sender: FDA-Public Use
  Company Number: US-PFIZER INC-2015157376

PATIENT
  Age: 71 Year
  Sex: Male
  Weight: 84 kg

DRUGS (5)
  1. TYROSINE [Concomitant]
     Active Substance: TYROSINE
     Indication: BLOOD PRESSURE ABNORMAL
     Dosage: UNK
  2. VIAGRA [Suspect]
     Active Substance: SILDENAFIL CITRATE
     Dosage: 100 MG, AS NEEDED
     Dates: start: 2009
  3. TYROSINE [Concomitant]
     Active Substance: TYROSINE
     Indication: PROSTATIC DISORDER
  4. TRAMADOL. [Concomitant]
     Active Substance: TRAMADOL
     Indication: PAIN
     Dosage: UNK
  5. TYROSINE [Concomitant]
     Active Substance: TYROSINE
     Indication: SINUS DISORDER

REACTIONS (1)
  - Drug ineffective [Unknown]
